FAERS Safety Report 7797927-X (Version None)
Quarter: 2011Q4

REPORT INFORMATION
  Report Type: 
  Country: None (occurrence: None)
  Receive Date: 20111005
  Receipt Date: 20110930
  Transmission Date: 20120403
  Serious: Yes (Hospitalization)
  Sender: FDA-Public Use
  Company Number: US-GLAXOSMITHKLINE-A0881318A

PATIENT
  Age: 52 Year
  Sex: Male
  Weight: 100 kg

DRUGS (4)
  1. TOPROL-XL [Concomitant]
  2. PRAVACHOL [Concomitant]
  3. AVANDIA [Suspect]
     Indication: TYPE 2 DIABETES MELLITUS
     Dosage: 8MG PER DAY
     Route: 048
     Dates: start: 20020524, end: 20070517
  4. DIOVAN [Concomitant]

REACTIONS (1)
  - MYOCARDIAL INFARCTION [None]
